FAERS Safety Report 4505173-8 (Version None)
Quarter: 2004Q4

REPORT INFORMATION
  Report Type: 
  Country: None (occurrence: None)
  Receive Date: 20041117
  Receipt Date: 20041117
  Transmission Date: 20050328
  Serious: Yes (Other)
  Sender: FDA-Public Use
  Company Number: None

PATIENT
  Age: 16 Year
  Sex: Male

DRUGS (3)
  1. CORICIDIN [Suspect]
     Indication: EUPHORIC MOOD
     Dosage: ORAL
     Route: 048
  2. DRAMAMINE [Concomitant]
  3. ROBITUSSIN [Concomitant]

REACTIONS (3)
  - DRUG ABUSER [None]
  - HALLUCINATION [None]
  - MULTIPLE DRUG OVERDOSE INTENTIONAL [None]
